FAERS Safety Report 5483243-8 (Version None)
Quarter: 2007Q4

REPORT INFORMATION
  Report Type: 
  Country: None (occurrence: None)
  Receive Date: 20071009
  Receipt Date: 20070926
  Transmission Date: 20080405
  Serious: Yes (Life-Threatening)
  Sender: FDA-Public Use
  Company Number: 2007JP004102

PATIENT
  Age: 28 Year
  Sex: Female

DRUGS (7)
  1. PROTOPIC [Suspect]
     Indication: DERMATITIS ATOPIC
     Dosage: 0.1%, TOPICAL
     Route: 061
     Dates: start: 19991210, end: 20070830
  2. ALLEGRA (FEXOFENADINE HYDROCHLORIDE) [Concomitant]
  3. METHADERM (DEXAMETHASONE DIPROPIONATE) OINTMENT [Concomitant]
  4. TOPSYM (FLUOCINONIDE) OINTMENT [Concomitant]
  5. ACUATIM (NADIFLOXACIN) OINTMENT [Concomitant]
  6. PETROLATUM (PETROLATUM) EXTERNAL [Concomitant]
  7. STEROID EXTERNAL [Concomitant]

REACTIONS (1)
  - LYMPHOMA [None]
